FAERS Safety Report 7645614-0 (Version None)
Quarter: 2011Q3

REPORT INFORMATION
  Report Type: 
  Country: None (occurrence: None)
  Receive Date: 20110729
  Receipt Date: 20110722
  Transmission Date: 20111222
  Serious: Yes (Hospitalization)
  Sender: FDA-Public Use
  Company Number: PHHY2011NO66041

PATIENT
  Age: 84 Year
  Sex: Female

DRUGS (9)
  1. TRAMADOL HCL [Suspect]
     Indication: BACK PAIN
     Route: 048
     Dates: start: 20110618, end: 20110628
  2. VESICARE [Concomitant]
     Dosage: 5 MG, QD
     Route: 048
  3. ARTHROTEC [Suspect]
     Indication: BACK PAIN
     Dosage: 1 DF, BID
     Route: 048
     Dates: start: 20110618
  4. NEXIUM [Concomitant]
     Indication: OESOPHAGITIS
     Dosage: 20 MG, QD
     Route: 048
     Dates: start: 20060101
  5. BUPRENORPHINE [Suspect]
     Indication: BACK PAIN
     Dosage: 15 UG, QD
     Route: 062
     Dates: start: 20110618
  6. LAXOBERAL [Concomitant]
     Indication: CONSTIPATION
     Dosage: 10 GTT, BID
     Route: 048
  7. PARACET [Suspect]
     Indication: BACK PAIN
     Dosage: 1 G, QID
     Route: 048
     Dates: start: 20110618
  8. IMOVANE [Concomitant]
     Dosage: 1 DF, PRN (5 MG)
     Route: 048
  9. LOSARTAN POTASSIUM [Concomitant]
     Indication: HYPERTENSION
     Route: 048

REACTIONS (4)
  - RENAL FAILURE [None]
  - ASTHENIA [None]
  - DECREASED APPETITE [None]
  - CONSTIPATION [None]
